FAERS Safety Report 16570563 (Version 1)
Quarter: 2019Q3

REPORT INFORMATION
  Report Type: Spontaneous
  Country: CN (occurrence: CN)
  Receive Date: 20190715
  Receipt Date: 20190715
  Transmission Date: 20191004
  Serious: Yes (Other)
  Sender: FDA-Public Use
  Company Number: CN-BAYER-2019-127943

PATIENT
  Sex: Female

DRUGS (1)
  1. YASMIN [Suspect]
     Active Substance: DROSPIRENONE\ETHINYL ESTRADIOL
     Indication: OVARIAN CYSTECTOMY
     Dosage: UNK
     Route: 048
     Dates: start: 201809, end: 201907

REACTIONS (4)
  - Product use in unapproved indication [None]
  - Liver injury [None]
  - Bile duct stone [None]
  - Off label use [None]

NARRATIVE: CASE EVENT DATE: 201906
